FAERS Safety Report 6649752-0 (Version None)
Quarter: 2010Q1

REPORT INFORMATION
  Report Type: 
  Country: None (occurrence: None)
  Receive Date: 20100324
  Receipt Date: 20100324
  Transmission Date: 20100710
  Serious: Yes (Hospitalization, Other)
  Sender: FDA-Public Use
  Company Number: None

PATIENT
  Age: 68 Year
  Sex: Female
  Weight: 72.5755 kg

DRUGS (2)
  1. BONIVA [Suspect]
     Indication: BONE DENSITY DECREASED
     Dosage: 150 MG ONCE-MONTHLY PO
     Route: 048
     Dates: start: 20100106, end: 20100106
  2. BONIVA [Suspect]
     Indication: BONE DENSITY DECREASED
     Dosage: 150 MG ONCE-MONTHLY PO
     Route: 048
     Dates: start: 20100206, end: 20100206

REACTIONS (9)
  - BACK PAIN [None]
  - BALANCE DISORDER [None]
  - DISORIENTATION [None]
  - HEADACHE [None]
  - MYALGIA [None]
  - NECK PAIN [None]
  - PAIN IN JAW [None]
  - VERTIGO [None]
  - VOMITING [None]
